FAERS Safety Report 26155601 (Version 1)
Quarter: 2025Q4

REPORT INFORMATION
  Report Type: Spontaneous
  Country: US (occurrence: US)
  Receive Date: 20251215
  Receipt Date: 20251215
  Transmission Date: 20260118
  Serious: No
  Sender: GALDERMA
  Company Number: US-GALDERMA-US2025024751

PATIENT

DRUGS (10)
  1. NEMLUVIO [Suspect]
     Active Substance: NEMOLIZUMAB-ILTO
     Indication: Neurodermatitis
     Dosage: 60 MILLIGRAM
     Route: 058
     Dates: start: 202507, end: 202507
  2. NEMLUVIO [Suspect]
     Active Substance: NEMOLIZUMAB-ILTO
     Dosage: 60 MILLIGRAM
     Route: 058
  3. NEMLUVIO [Suspect]
     Active Substance: NEMOLIZUMAB-ILTO
     Dosage: 60 MILLIGRAM
     Route: 058
  4. SYNTHROID [Concomitant]
     Active Substance: LEVOTHYROXINE SODIUM
     Indication: Thyroid disorder
     Dosage: UNK
     Dates: start: 2004
  5. FLECAINIDE [Concomitant]
     Active Substance: FLECAINIDE
     Indication: Heart rate
     Dosage: UNK
     Dates: start: 2018
  6. LOSARTAN [Concomitant]
     Active Substance: LOSARTAN
     Indication: Blood pressure measurement
     Dosage: UNK
     Dates: start: 2004
  7. ZEPBOUND [Concomitant]
     Active Substance: TIRZEPATIDE
     Indication: Weight decreased
     Dosage: UNK
     Dates: start: 202503
  8. ZEPBOUND [Concomitant]
     Active Substance: TIRZEPATIDE
     Indication: Atrial fibrillation
  9. ZEPBOUND [Concomitant]
     Active Substance: TIRZEPATIDE
     Indication: Sleep apnoea syndrome
  10. XARELTO [Concomitant]
     Active Substance: RIVAROXABAN
     Indication: Atrial fibrillation
     Dosage: UNK
     Dates: start: 2018

REACTIONS (2)
  - Device malfunction [Recovered/Resolved]
  - Inappropriate schedule of product administration [Recovered/Resolved]

NARRATIVE: CASE EVENT DATE: 20251121
